FAERS Safety Report 4305123-3 (Version None)
Quarter: 2004Q1

REPORT INFORMATION
  Report Type: 
  Country: None (occurrence: None)
  Receive Date: 20040225
  Receipt Date: 20040225
  Transmission Date: 20041129
  Serious: Yes (Life-Threatening, Hospitalization)
  Sender: FDA-Public Use
  Company Number: None

PATIENT
  Age: 26 Year
  Sex: Female

DRUGS (17)
  1. SUCCINYLCHOLINE CHLORIDE [Suspect]
     Indication: INTUBATION
     Dosage: 100 MG IV
     Route: 042
     Dates: start: 20031106
  2. AZITHROMYCIN [Concomitant]
  3. BUSPIRONE HCL [Concomitant]
  4. CEFEPIME [Concomitant]
  5. FENTANYL [Concomitant]
  6. FUROSEMIDE [Concomitant]
  7. HEPARIN [Concomitant]
  8. IPRATROPIUM BROMIDE [Concomitant]
  9. LORAZEPAM [Concomitant]
  10. METRONIDAZOLE [Concomitant]
  11. MORPHINE [Concomitant]
  12. CISTRACURIUM [Concomitant]
  13. NYSTATIN [Concomitant]
  14. KCL TAB [Concomitant]
  15. RANITIDINE [Concomitant]
  16. RIFAMPIN [Concomitant]
  17. VANCOMYCIN [Concomitant]

REACTIONS (4)
  - BLOOD POTASSIUM DECREASED [None]
  - CARDIAC ARREST [None]
  - VENTRICULAR FIBRILLATION [None]
  - VENTRICULAR TACHYCARDIA [None]
